FAERS Safety Report 5388034-4 (Version None)
Quarter: 2007Q3

REPORT INFORMATION
  Report Type: 
  Country: None (occurrence: None)
  Receive Date: 20070716
  Receipt Date: 20070705
  Transmission Date: 20080115
  Serious: Yes (Death)
  Sender: FDA-Public Use
  Company Number: US-JNJFOC-20070503181

PATIENT
  Sex: Male
  Weight: 134.27 kg

DRUGS (9)
  1. ULTRAM [Suspect]
     Indication: ARTHRALGIA
     Route: 048
  2. ULTRAM [Suspect]
     Route: 048
  3. BENICAR HCT [Concomitant]
     Indication: HYPERTENSION
     Dosage: 40/25 DAILY
     Route: 065
  4. KEPPRA [Concomitant]
     Indication: CONVULSION
     Route: 065
  5. VIT BIZ [Concomitant]
     Indication: ANAEMIA
     Route: 065
  6. CARAFATE [Concomitant]
     Indication: HAEMORRHAGE
     Route: 065
  7. ZOCOR [Concomitant]
     Indication: BLOOD CHOLESTEROL INCREASED
     Route: 065
  8. CLARITIN [Concomitant]
     Indication: MULTIPLE ALLERGIES
     Route: 065
  9. PROTONIX [Concomitant]
     Indication: GASTRIC ULCER
     Route: 065

REACTIONS (4)
  - ANALGESIC DRUG LEVEL ABOVE THERAPEUTIC [None]
  - COMPLETED SUICIDE [None]
  - DRUG TOXICITY [None]
  - OVERDOSE [None]
